FAERS Safety Report 8978217 (Version 1)
Quarter: 2012Q4

REPORT INFORMATION
  Report Type: Spontaneous
  Country: US (occurrence: None)
  Receive Date: 20121218
  Receipt Date: 20121218
  Transmission Date: 20130627
  Serious: Yes (Hospitalization, Other)
  Sender: FDA-Public Use
  Company Number: None

PATIENT
  Age: 62 Year
  Sex: Female
  Weight: 117.94 kg

DRUGS (1)
  1. METFORMIN [Suspect]
     Dates: start: 20121012, end: 20121013

REACTIONS (3)
  - Asthenia [None]
  - Dizziness [None]
  - Activities of daily living impaired [None]
